FAERS Safety Report 6559696-0 (Version None)
Quarter: 2010Q1

REPORT INFORMATION
  Report Type: 
  Country: None (occurrence: None)
  Receive Date: 20100129
  Receipt Date: 20090928
  Transmission Date: 20100710
  Serious: No
  Sender: FDA-Public Use
  Company Number: US-ABBOTT-09P-163-0596175-00

PATIENT
  Sex: Female
  Weight: 64.922 kg

DRUGS (5)
  1. HUMIRA [Suspect]
     Indication: CROHN'S DISEASE
     Dates: start: 20090807
  2. HUMIRA [Suspect]
  3. HUMIRA [Suspect]
  4. STEROID DOSE PACK [Concomitant]
     Indication: DRUG USE FOR UNKNOWN INDICATION
  5. PAIN MEDICATION [Concomitant]
     Indication: PAIN

REACTIONS (2)
  - FREQUENT BOWEL MOVEMENTS [None]
  - GASTROINTESTINAL PAIN [None]
